FAERS Safety Report 23462849 (Version 1)
Quarter: 2024Q1

REPORT INFORMATION
  Report Type: Spontaneous
  Country: US (occurrence: None)
  Receive Date: 20240131
  Receipt Date: 20240131
  Transmission Date: 20240410
  Serious: Yes (Other)
  Sender: FDA-Public Use
  Company Number: None

PATIENT
  Age: 68 Year
  Sex: Male

DRUGS (1)
  1. MOUNJARO [Suspect]
     Active Substance: TIRZEPATIDE
     Dosage: OTHER FREQUENCY : EVERY 7 DAYS;?
     Route: 058

REACTIONS (3)
  - Swollen tongue [None]
  - Speech disorder [None]
  - Therapy change [None]

NARRATIVE: CASE EVENT DATE: 20240131
